FAERS Safety Report 9379745 (Version 2)
Quarter: 2013Q3

REPORT INFORMATION
  Report Type: Spontaneous
  Country: US (occurrence: US)
  Receive Date: 20130702
  Receipt Date: 20130902
  Transmission Date: 20140515
  Serious: Yes (Death)
  Sender: FDA-Public Use
  Company Number: US-PFIZER INC-2013193667

PATIENT
  Age: 51 Year
  Sex: Male

DRUGS (8)
  1. SOMAVERT [Suspect]
     Indication: ACROMEGALY
     Dosage: 20 MG, 1X/DAY
     Route: 058
     Dates: start: 20090714
  2. AMARYL [Concomitant]
     Dosage: UNK
  3. ACTOS [Concomitant]
     Dosage: UNK
  4. VITAMIN D [Concomitant]
     Dosage: UNK
  5. NORVASC [Concomitant]
     Dosage: UNK
  6. SYNTHROID [Concomitant]
     Dosage: UNK
  7. COREG [Concomitant]
     Dosage: UNK
  8. LIPITOR [Concomitant]
     Dosage: UNK

REACTIONS (1)
  - Pulmonary embolism [Fatal]
